FAERS Safety Report 6074621-7 (Version None)
Quarter: 2009Q1

REPORT INFORMATION
  Report Type: 
  Country: None (occurrence: None)
  Receive Date: 20090212
  Receipt Date: 20090202
  Transmission Date: 20090719
  Serious: Yes (Other)
  Sender: FDA-Public Use
  Company Number: FR-ALLERGAN-0901258US

PATIENT
  Sex: Female
  Weight: 40 kg

DRUGS (3)
  1. BOTOX [Suspect]
     Indication: MUSCLE SPASTICITY
     Dosage: 50 TO 150 UNITS, SINGLE
     Route: 030
  2. BOTOX [Suspect]
     Dosage: 50 TO 150 UNITS, SINGLE
     Route: 030
  3. BOTOX [Suspect]
     Dosage: 50 TO 150 UNITS, SINGLE
     Route: 030

REACTIONS (4)
  - LOSS OF CONSCIOUSNESS [None]
  - MALAISE [None]
  - NAUSEA [None]
  - VERTIGO [None]
